FAERS Safety Report 7622718-X (Version None)
Quarter: 2011Q3

REPORT INFORMATION
  Report Type: 
  Country: None (occurrence: None)
  Receive Date: 20110719
  Receipt Date: 20110719
  Transmission Date: 20111222
  Serious: Yes (Hospitalization, Disabling, Other)
  Sender: FDA-Public Use
  Company Number: None

PATIENT
  Age: 28 Year
  Sex: Female
  Weight: 96.1626 kg

DRUGS (1)
  1. DEPO-PROVERA [Suspect]
     Indication: CONTRACEPTION
     Dosage: ONE TIME ONLY IM
     Route: 030
     Dates: start: 20110321, end: 20110321

REACTIONS (9)
  - DEPRESSION [None]
  - DYSPNOEA [None]
  - CIRCADIAN RHYTHM SLEEP DISORDER [None]
  - AUTONOMIC NERVOUS SYSTEM IMBALANCE [None]
  - ANXIETY [None]
  - TACHYCARDIA [None]
  - BLOOD PRESSURE DECREASED [None]
  - PULMONARY EMBOLISM [None]
  - SYNCOPE [None]
